FAERS Safety Report 7081416-4 (Version None)
Quarter: 2010Q4

REPORT INFORMATION
  Report Type: 
  Country: None (occurrence: None)
  Receive Date: 20101025
  Receipt Date: 20101011
  Transmission Date: 20110411
  Serious: Yes (Other)
  Sender: FDA-Public Use
  Company Number: 2010P1001958

PATIENT
  Age: 79 Year
  Sex: Male

DRUGS (8)
  1. ROPINIROLE [Suspect]
     Indication: PARKINSON'S DISEASE
     Dosage: 1 MG; TID; PO, 9 MG; QD; PO, 3 MG; QD; PO
     Route: 048
  2. LEVODOPA [Concomitant]
  3. BENSERAZIDE [Concomitant]
  4. RAMIPRIL [Concomitant]
  5. BISOPROLOL [Concomitant]
  6. AMLODIPINE [Concomitant]
  7. ASPIRIN [Concomitant]
  8. BENDROFLUAZIDE [Concomitant]

REACTIONS (4)
  - ANXIETY [None]
  - EXCORIATION [None]
  - FORMICATION [None]
  - SOMATIC DELUSION [None]
